FAERS Safety Report 9400369 (Version 1)
Quarter: 2013Q3

REPORT INFORMATION
  Report Type: Spontaneous
  Country: TR (occurrence: None)
  Receive Date: 20130711
  Receipt Date: 20130711
  Transmission Date: 20140515
  Serious: Yes (Hospitalization)
  Sender: FDA-Public Use
  Company Number: FK201302377

PATIENT
  Age: 38 Year
  Sex: Male

DRUGS (2)
  1. VALPROATE (MANUFACTURER UNKNOWN) (VALPROATE SODIUM) (VALPROATE SODIUM) [Suspect]
     Indication: BIPOLAR DISORDER
  2. RISPERIDONE [Suspect]
     Indication: BIPOLAR DISORDER

REACTIONS (4)
  - Pleural effusion [None]
  - Pericardial effusion [None]
  - Pleural effusion [None]
  - Pericardial effusion [None]
